FAERS Safety Report 23064112 (Version 1)
Quarter: 2023Q4

REPORT INFORMATION
  Report Type: Spontaneous
  Country: US (occurrence: US)
  Receive Date: 20231013
  Receipt Date: 20231013
  Transmission Date: 20240110
  Serious: Yes (Hospitalization, Other)
  Sender: FDA-Public Use
  Company Number: US-TRIS PHARMA, INC.-23US011116

PATIENT

DRUGS (8)
  1. RISPERIDONE [Suspect]
     Active Substance: RISPERIDONE
     Indication: Dementia with Lewy bodies
     Dosage: 0.25 MILLIGRAM
  2. TEMAZEPAM [Suspect]
     Active Substance: TEMAZEPAM
     Indication: Dementia with Lewy bodies
     Dosage: 7.5 MILLIGRAM
  3. PRAZOSIN [Suspect]
     Active Substance: PRAZOSIN
     Indication: Post-traumatic stress disorder
     Dosage: 1 MILLIGRAM
  4. SERTRALINE [Concomitant]
     Active Substance: SERTRALINE HYDROCHLORIDE
     Indication: Depressive symptom
     Dosage: 25 MILLIGRAM, QD
  5. SERTRALINE [Concomitant]
     Active Substance: SERTRALINE HYDROCHLORIDE
     Indication: Night sweats
     Dosage: 50 MILLIGRAM, QD
  6. SERTRALINE [Concomitant]
     Active Substance: SERTRALINE HYDROCHLORIDE
     Indication: Nightmare
  7. CLONAZEPAM [Concomitant]
     Active Substance: CLONAZEPAM
     Indication: Rapid eye movement sleep behaviour disorder
     Dosage: 0.5 MILLIGRAM
  8. MELATONIN [Concomitant]
     Active Substance: MELATONIN
     Indication: Dementia with Lewy bodies
     Dosage: 3 MILLIGRAM

REACTIONS (5)
  - Hallucination, visual [Recovered/Resolved]
  - Aggression [Recovered/Resolved]
  - Off label use [Unknown]
  - Anxiety [Recovered/Resolved]
  - Drug ineffective for unapproved indication [Unknown]
